FAERS Safety Report 12678445 (Version 1)
Quarter: 2016Q3

REPORT INFORMATION
  Report Type: Spontaneous
  Country: US (occurrence: US)
  Receive Date: 20160823
  Receipt Date: 20160823
  Transmission Date: 20161109
  Serious: No
  Sender: FDA-Public Use
  Company Number: US-BAYER-2016-159568

PATIENT
  Age: 15 Year
  Sex: Female

DRUGS (2)
  1. OCELLA [Suspect]
     Active Substance: DROSPIRENONE\ETHINYL ESTRADIOL
     Indication: MIGRAINE
  2. OCELLA [Suspect]
     Active Substance: DROSPIRENONE\ETHINYL ESTRADIOL
     Indication: MENSTRUAL CYCLE MANAGEMENT
     Dosage: UNK
     Route: 048
     Dates: start: 20160501, end: 20160530

REACTIONS (9)
  - Weight decreased [None]
  - Constipation [None]
  - Nausea [None]
  - Impaired gastric emptying [None]
  - Vomiting [None]
  - Adverse event [None]
  - Off label use [None]
  - Pre-existing condition improved [None]
  - Abdominal pain [None]
